FAERS Safety Report 24153354 (Version 1)
Quarter: 2024Q3

REPORT INFORMATION
  Report Type: Spontaneous
  Country: US (occurrence: None)
  Receive Date: 20240730
  Receipt Date: 20240730
  Transmission Date: 20241016
  Serious: Yes (Hospitalization)
  Sender: Public
  Company Number: None

PATIENT
  Age: 75 Year
  Sex: Female
  Weight: 53.07 kg

DRUGS (22)
  1. RECLAST [Suspect]
     Active Substance: ZOLEDRONIC ACID
  2. ALBUTEROL\IPRATROPIUM [Concomitant]
     Active Substance: ALBUTEROL\IPRATROPIUM
  3. AZITHROMYCIN [Concomitant]
     Active Substance: AZITHROMYCIN
  4. CEFTRIAXONE [Concomitant]
     Active Substance: CEFTRIAXONE\CEFTRIAXONE SODIUM
  5. DIPHENHYDRAMINE [Concomitant]
     Active Substance: DIPHENHYDRAMINE
  6. DROPERIDOL [Concomitant]
     Active Substance: DROPERIDOL
  7. GI COCKTAIL SUSPENSION [Concomitant]
  8. PANTOPRAZOLE [Concomitant]
     Active Substance: PANTOPRAZOLE
  9. KLOR-CON [Concomitant]
     Active Substance: POTASSIUM CHLORIDE
  10. SODIUM CHLORIDE [Concomitant]
     Active Substance: SODIUM CHLORIDE
  11. ARORVASTATIN [Concomitant]
  12. NUCALA [Concomitant]
     Active Substance: MEPOLIZUMAB
  13. CETIRIZINE [Concomitant]
     Active Substance: CETIRIZINE HYDROCHLORIDE
  14. NORTRIPTYLINE [Concomitant]
     Active Substance: NORTRIPTYLINE
  15. TIOTROPIUM BROMIDE MONOHYDRATE [Concomitant]
     Active Substance: TIOTROPIUM BROMIDE MONOHYDRATE
  16. FLUTICASONE PROPIONATE\SALMETEROL XINAFOATE [Concomitant]
     Active Substance: FLUTICASONE PROPIONATE\SALMETEROL XINAFOATE
  17. FAMOTIDINE [Concomitant]
     Active Substance: FAMOTIDINE
  18. MONTELUKAST [Concomitant]
     Active Substance: MONTELUKAST SODIUM
  19. ALBUTEROL [Concomitant]
     Active Substance: ALBUTEROL
  20. VITAMIN D3 [Concomitant]
     Active Substance: CHOLECALCIFEROL
  21. MAGNESIUM [Concomitant]
     Active Substance: MAGNESIUM
  22. MOMETASONE-IPRATROPIUM [Concomitant]

REACTIONS (10)
  - Fatigue [None]
  - Influenza like illness [None]
  - Nausea [None]
  - Bone pain [None]
  - Dizziness [None]
  - Decreased appetite [None]
  - Parosmia [None]
  - Vomiting [None]
  - Decreased activity [None]
  - Pneumonia [None]

NARRATIVE: CASE EVENT DATE: 20240531
